FAERS Safety Report 5486399-6 (Version None)
Quarter: 2007Q4

REPORT INFORMATION
  Report Type: 
  Country: None (occurrence: None)
  Receive Date: 20071016
  Receipt Date: 20071012
  Transmission Date: 20080405
  Serious: Yes (Death)
  Sender: FDA-Public Use
  Company Number: CA-ASTRAZENECA-2007UW23702

PATIENT
  Age: 38 Year
  Sex: Male

DRUGS (2)
  1. SEROQUEL [Suspect]
     Route: 048
  2. VALPROIC ACID [Concomitant]
     Route: 048

REACTIONS (3)
  - CARDIAC ARREST [None]
  - DIABETES MELLITUS [None]
  - KETOACIDOSIS [None]
